FAERS Safety Report 15075417 (Version 1)
Quarter: 2018Q2

REPORT INFORMATION
  Report Type: Report from Study
  Country: US (occurrence: US)
  Receive Date: 20180627
  Receipt Date: 20180627
  Transmission Date: 20180711
  Serious: No
  Sender: FDA-Public Use
  Company Number: US-SAOL THERAPEUTICS-2018SAO00548

PATIENT
  Age: 45 Year
  Sex: Male

DRUGS (16)
  1. HYDROMORPHONE [Suspect]
     Active Substance: HYDROMORPHONE
     Dosage: 2.6001 MG, \DAY
     Route: 037
     Dates: start: 20180118
  2. CLONIDINE. [Suspect]
     Active Substance: CLONIDINE
     Dosage: 179.51 ?G, \DAY - MAX
     Route: 037
     Dates: end: 20180118
  3. CLONIDINE. [Suspect]
     Active Substance: CLONIDINE
     Dosage: 118.88 ?G, \DAY
     Route: 037
     Dates: end: 20180118
  4. CLONIDINE. [Suspect]
     Active Substance: CLONIDINE
     Dosage: 108.34 ?G, \DAY
     Route: 037
     Dates: start: 20180118
  5. COMPOUNDED BACLOFEN [Suspect]
     Active Substance: BACLOFEN
     Dosage: 260.01 ?G, \DAY
     Route: 037
     Dates: start: 20180118
  6. HYDROMORPHONE [Suspect]
     Active Substance: HYDROMORPHONE
     Dosage: 2.8530 MG, \DAY
     Route: 037
     Dates: end: 20180118
  7. HYDROMORPHONE [Suspect]
     Active Substance: HYDROMORPHONE
     Dosage: 4.0560 MG, \DAY - MAX
     Route: 037
     Dates: start: 20180118
  8. BUPIVACAINE. [Suspect]
     Active Substance: BUPIVACAINE
     Dosage: 9.510 MG, \DAY
     Route: 037
     Dates: end: 20180118
  9. COMPOUNDED BACLOFEN [Suspect]
     Active Substance: BACLOFEN
     Dosage: 430.83 ?G, \DAY - MAX
     Route: 037
     Dates: end: 20180118
  10. HYDROMORPHONE [Suspect]
     Active Substance: HYDROMORPHONE
     Dosage: 4.3083 MG, \DAY - MAX
     Route: 037
     Dates: end: 20180118
  11. COMPOUNDED BACLOFEN [Suspect]
     Active Substance: BACLOFEN
     Dosage: 405.60 ?G, \DAY - MAX
     Route: 037
     Dates: start: 20180118
  12. COMPOUNDED BACLOFEN [Suspect]
     Active Substance: BACLOFEN
     Dosage: 285.3 ?G, \DAY
     Route: 037
     Dates: end: 20180118
  13. BUPIVACAINE. [Suspect]
     Active Substance: BUPIVACAINE
     Dosage: 14.361 MG, \DAY - MAX
     Route: 037
     Dates: end: 20180118
  14. BUPIVACAINE. [Suspect]
     Active Substance: BUPIVACAINE
     Dosage: 13.520 MG, \DAY - MAX
     Route: 037
     Dates: start: 20180118
  15. BUPIVACAINE. [Suspect]
     Active Substance: BUPIVACAINE
     Dosage: 8.667 MG, \DAY
     Route: 037
     Dates: start: 20180118
  16. CLONIDINE. [Suspect]
     Active Substance: CLONIDINE
     Dosage: 169.00 ?G, \DAY - MAX
     Route: 037
     Dates: start: 20180118

REACTIONS (1)
  - Implant site pain [Not Recovered/Not Resolved]

NARRATIVE: CASE EVENT DATE: 20180315
